FAERS Safety Report 4874245-0 (Version None)
Quarter: 2006Q1

REPORT INFORMATION
  Report Type: 
  Country: None (occurrence: None)
  Receive Date: 20060106
  Receipt Date: 20051005
  Transmission Date: 20060701
  Serious: Yes (Hospitalization)
  Sender: FDA-Public Use
  Company Number: US-MERCK-0510USA03256

PATIENT
  Age: 69 Year
  Sex: Female
  Weight: 66 kg

DRUGS (2)
  1. VIOXX [Suspect]
     Indication: OSTEOARTHRITIS
     Route: 048
     Dates: start: 20001002, end: 20020202
  2. PREMARIN [Concomitant]
     Route: 065

REACTIONS (8)
  - ACUTE MYOCARDIAL INFARCTION [None]
  - CHRONIC OBSTRUCTIVE PULMONARY DISEASE [None]
  - COLONOSCOPY [None]
  - CORONARY ARTERY DISEASE [None]
  - CORONARY ARTERY OCCLUSION [None]
  - INTESTINAL FUNCTIONAL DISORDER [None]
  - ISCHAEMIC CARDIOMYOPATHY [None]
  - VENTRICULAR TACHYCARDIA [None]
